FAERS Safety Report 22790348 (Version 2)
Quarter: 2025Q1

REPORT INFORMATION
  Report Type: Spontaneous
  Country: US (occurrence: US)
  Receive Date: 20230805
  Receipt Date: 20250114
  Transmission Date: 20250409
  Serious: No
  Sender: CHATTEM
  Company Number: US-SA-SAC20211109001253

PATIENT
  Sex: Male

DRUGS (1)
  1. GOLD BOND MEDICATED ORIGINAL STRENGTH BODY [Suspect]
     Active Substance: MENTHOL
     Indication: Pruritus

REACTIONS (1)
  - Pruritus [Unknown]
